FAERS Safety Report 11648978 (Version 3)
Quarter: 2016Q4

REPORT INFORMATION
  Report Type: Report from Study
  Country: AU (occurrence: AU)
  Receive Date: 20151021
  Receipt Date: 20161004
  Transmission Date: 20170206
  Serious: Yes (Hospitalization, Other)
  Sender: FDA-Public Use
  Company Number: PHHY2015AU124778

PATIENT
  Sex: Male

DRUGS (2)
  1. GLIVEC [Suspect]
     Active Substance: IMATINIB MESYLATE
     Indication: GASTROINTESTINAL STROMAL TUMOUR
     Dosage: 400 MG, QD
     Route: 048
  2. GLIVEC [Suspect]
     Active Substance: IMATINIB MESYLATE
     Dosage: 800 MG, QD
     Route: 048

REACTIONS (8)
  - Acute kidney injury [Unknown]
  - Malignant neoplasm progression [Unknown]
  - Recurrent cancer [Unknown]
  - Urinary retention [Unknown]
  - Gastrointestinal stromal tumour [Unknown]
  - Drug resistance [Unknown]
  - Metastases to liver [Unknown]
  - Therapy non-responder [Unknown]
